FAERS Safety Report 18982140 (Version 13)
Quarter: 2023Q4

REPORT INFORMATION
  Report Type: Report from Study
  Country: US (occurrence: US)
  Receive Date: 20210308
  Receipt Date: 20231030
  Transmission Date: 20240110
  Serious: Yes (Other)
  Sender: FDA-Public Use
  Company Number: US-TAKEDA-US202032355

PATIENT
  Sex: Female

DRUGS (2)
  1. HUMAN IMMUNOGLOBULIN G [Suspect]
     Active Substance: HUMAN IMMUNOGLOBULIN G
     Indication: Immunodeficiency common variable
     Dosage: UNK
     Route: 042
  2. CUVITRU [Suspect]
     Active Substance: HUMAN IMMUNOGLOBULIN G
     Indication: Immunodeficiency common variable
     Dosage: UNK
     Route: 065

REACTIONS (23)
  - Chronic kidney disease [Unknown]
  - Craniofacial fracture [Unknown]
  - Bronchiectasis [Unknown]
  - Renal impairment [Unknown]
  - Extramammary Paget^s disease [Unknown]
  - Gastrointestinal disorder [Unknown]
  - Fall [Unknown]
  - Panic attack [Unknown]
  - Polyp [Unknown]
  - Incontinence [Unknown]
  - Asthenia [Unknown]
  - Asthma [Unknown]
  - Abdominal distension [Unknown]
  - Blood pressure increased [Unknown]
  - Diarrhoea [Unknown]
  - Peripheral swelling [Unknown]
  - Inflammatory marker increased [Unknown]
  - Blood pressure diastolic decreased [Unknown]
  - Arthralgia [Unknown]
  - Nausea [Unknown]
  - Fatigue [Unknown]
  - Pain [Unknown]
  - Inappropriate schedule of product administration [Unknown]
